FAERS Safety Report 12953971 (Version 2)
Quarter: 2016Q4

REPORT INFORMATION
  Report Type: Spontaneous
  Country: US (occurrence: US)
  Receive Date: 20161118
  Receipt Date: 20161211
  Transmission Date: 20170207
  Serious: Yes (Other)
  Sender: FDA-Public Use
  Company Number: US-BRISTOL-MYERS SQUIBB COMPANY-BMS-2016-096038

PATIENT
  Sex: Female
  Weight: 29 kg

DRUGS (3)
  1. ORENCIA [Suspect]
     Active Substance: ABATACEPT
     Indication: JUVENILE IDIOPATHIC ARTHRITIS
     Dosage: 300 MG, Q2WK
     Route: 042
     Dates: start: 20161011
  2. ORENCIA [Suspect]
     Active Substance: ABATACEPT
     Indication: PRODUCT USED FOR UNKNOWN INDICATION
     Dosage: 300 MG, Q2WK
     Route: 042
     Dates: start: 20161024
  3. ORENCIA [Suspect]
     Active Substance: ABATACEPT
     Indication: PRODUCT USED FOR UNKNOWN INDICATION
     Dosage: 300 MG, Q2WK
     Route: 042
     Dates: start: 20161107

REACTIONS (4)
  - Eye pain [Unknown]
  - Dehydration [Unknown]
  - Vomiting [Unknown]
  - Headache [Unknown]
